FAERS Safety Report 26127233 (Version 1)
Quarter: 2025Q4

REPORT INFORMATION
  Report Type: Spontaneous
  Country: KR (occurrence: KR)
  Receive Date: 20251205
  Receipt Date: 20251205
  Transmission Date: 20260118
  Serious: Yes (Hospitalization, Other)
  Sender: BOEHRINGER INGELHEIM
  Company Number: KR-BoehringerIngelheim-2025-BI-111760

PATIENT

DRUGS (1)
  1. OFEV [Suspect]
     Active Substance: NINTEDANIB
     Indication: Product used for unknown indication

REACTIONS (7)
  - Pneumonia [Recovering/Resolving]
  - Condition aggravated [Unknown]
  - Immunodeficiency [Unknown]
  - Muscular weakness [Unknown]
  - Weight decreased [Unknown]
  - Asthenia [Unknown]
  - Atypical mycobacterial infection [Not Recovered/Not Resolved]
